FAERS Safety Report 12737024 (Version 1)
Quarter: 2016Q3

REPORT INFORMATION
  Report Type: Spontaneous
  Country: SE (occurrence: SE)
  Receive Date: 20160912
  Receipt Date: 20160912
  Transmission Date: 20161109
  Serious: Yes (Other)
  Sender: FDA-Public Use
  Company Number: SE-TEVA-689674ACC

PATIENT
  Age: 82 Year
  Sex: Male

DRUGS (16)
  1. DIGOXIN. [Concomitant]
     Active Substance: DIGOXIN
  2. FINASTERIDE. [Concomitant]
     Active Substance: FINASTERIDE
  3. FOLACIN [Concomitant]
     Active Substance: FOLIC ACID
  4. PAMOL [Concomitant]
     Active Substance: ACETAMINOPHEN
  5. SELOKENZOC [Concomitant]
     Active Substance: METOPROLOL SUCCINATE
  6. METHOTREXATE. [Concomitant]
     Active Substance: METHOTREXATE
  7. SALAZOPYRIN EN [Concomitant]
     Active Substance: SULFASALAZINE
  8. ELIQUIS [Concomitant]
     Active Substance: APIXABAN
  9. BETOLVIDON [Concomitant]
     Active Substance: CYANOCOBALAMIN
  10. ORUDIS [Concomitant]
     Active Substance: KETOPROFEN
     Dosage: PROLONGED-RELEASE
  11. RAMIPRIL. [Concomitant]
     Active Substance: RAMIPRIL
  12. MOVICOL [Concomitant]
     Active Substance: POLYETHYLENE GLYCOL 3350\POTASSIUM CHLORIDE\SODIUM BICARBONATE\SODIUM CHLORIDE
  13. ANTABUS 400 MG BRUSTABLETT [Suspect]
     Active Substance: DISULFIRAM
     Dosage: EFFERVESCENT TABLET
  14. OMEPRAZOLE. [Concomitant]
     Active Substance: OMEPRAZOLE
  15. ANTABUS 400 MG BRUSTABLETT [Suspect]
     Active Substance: DISULFIRAM
     Indication: ALCOHOL ABUSE
     Dosage: EFFERVESCENT TABLET
     Route: 048
     Dates: start: 20140317, end: 20160513
  16. SERETIDE [Concomitant]
     Active Substance: FLUTICASONE PROPIONATE\SALMETEROL XINAFOATE

REACTIONS (1)
  - Memory impairment [Unknown]
